FAERS Safety Report 10062862 (Version 1)
Quarter: 2014Q1

REPORT INFORMATION
  Report Type: Spontaneous
  Country: US (occurrence: None)
  Receive Date: 20140328
  Receipt Date: 20140328
  Transmission Date: 20141002
  Serious: No
  Sender: FDA-Public Use
  Company Number: CABO-14004029

PATIENT
  Age: 56 Year
  Sex: Male

DRUGS (1)
  1. COMETRIQ (CABOZANTINIB) CAPSULE [Suspect]
     Indication: RENAL CANCER
     Route: 048
     Dates: start: 20140214

REACTIONS (5)
  - Dry mouth [None]
  - Hypoaesthesia [None]
  - Burning sensation [None]
  - Constipation [None]
  - Off label use [None]
